FAERS Safety Report 23210100 (Version 1)
Quarter: 2023Q4

REPORT INFORMATION
  Report Type: Spontaneous
  Country: US (occurrence: US)
  Receive Date: 20231121
  Receipt Date: 20231121
  Transmission Date: 20240109
  Serious: Yes (Hospitalization)
  Sender: FDA-Public Use
  Company Number: US-GLAXOSMITHKLINE-US2023GSK160643

PATIENT

DRUGS (7)
  1. FLUTICASONE PROPIONATE [Suspect]
     Active Substance: FLUTICASONE PROPIONATE
     Indication: Product used for unknown indication
     Dosage: UNK
     Route: 055
  2. PREDNISONE [Suspect]
     Active Substance: PREDNISONE
     Indication: Asthma
     Dosage: UNK
     Route: 061
  3. PREDNISONE [Suspect]
     Active Substance: PREDNISONE
     Dosage: UNK
     Route: 048
  4. PREDNISONE [Suspect]
     Active Substance: PREDNISONE
     Dosage: UNK
     Route: 042
  5. LEVOTHYROXINE [Concomitant]
     Active Substance: LEVOTHYROXINE
     Indication: Hypothyroidism
     Dosage: UNK
  6. BUPROPION [Concomitant]
     Active Substance: BUPROPION
     Indication: Depression
     Dosage: UNK
  7. METHADONE [Concomitant]
     Active Substance: METHADONE HYDROCHLORIDE
     Indication: Depression
     Dosage: UNK

REACTIONS (12)
  - Cushingoid [Unknown]
  - Weight increased [Unknown]
  - Hair growth abnormal [Unknown]
  - Menstruation irregular [Unknown]
  - Heavy menstrual bleeding [Unknown]
  - Skin striae [Unknown]
  - Arthralgia [Unknown]
  - Hypertension [Unknown]
  - Obesity [Unknown]
  - Plethoric face [Unknown]
  - Hirsutism [Unknown]
  - Oedema peripheral [Unknown]
